FAERS Safety Report 18675964 (Version 1)
Quarter: 2020Q4

REPORT INFORMATION
  Report Type: Spontaneous
  Country: PL (occurrence: PL)
  Receive Date: 20201229
  Receipt Date: 20201229
  Transmission Date: 20210114
  Serious: Yes (Other)
  Sender: FDA-Public Use
  Company Number: NVSC2020PL273416

PATIENT
  Age: 61 Year
  Sex: Female

DRUGS (4)
  1. LETROZOLE. [Suspect]
     Active Substance: LETROZOLE
     Indication: BREAST CANCER METASTATIC
     Dosage: UNK
     Route: 065
     Dates: start: 20200317
  2. KISQALI [Suspect]
     Active Substance: RIBOCICLIB
     Dosage: UNK
     Route: 065
     Dates: start: 20200317
  3. KISQALI [Suspect]
     Active Substance: RIBOCICLIB
     Indication: BREAST CANCER METASTATIC
     Dosage: 200 MG, TID
     Route: 065
     Dates: start: 202003, end: 202006
  4. KISQALI [Suspect]
     Active Substance: RIBOCICLIB
     Dosage: 400 MG
     Route: 065

REACTIONS (8)
  - Abdominal pain upper [Unknown]
  - Scleral discolouration [Unknown]
  - Transaminases increased [Recovering/Resolving]
  - Neutropenia [Unknown]
  - Metastases to liver [Unknown]
  - Hepatotoxicity [Recovered/Resolved]
  - Hepatomegaly [Unknown]
  - Malaise [Unknown]

NARRATIVE: CASE EVENT DATE: 202009
